FAERS Safety Report 7069367-2 (Version None)
Quarter: 2010Q4

REPORT INFORMATION
  Report Type: 
  Country: None (occurrence: None)
  Receive Date: 20101028
  Receipt Date: 20101020
  Transmission Date: 20110411
  Serious: Yes (Other)
  Sender: FDA-Public Use
  Company Number: IT-ABBOTT-10P-083-0679408-00

PATIENT
  Sex: Female

DRUGS (3)
  1. MACLADIN [Suspect]
     Indication: HELICOBACTER GASTRITIS
     Dates: start: 20100901, end: 20100906
  2. AMOXICILLIN [Suspect]
     Indication: HELICOBACTER GASTRITIS
     Dates: start: 20100901, end: 20100906
  3. LUCEN [Concomitant]
     Indication: HELICOBACTER GASTRITIS
     Dates: start: 20100901, end: 20100906

REACTIONS (1)
  - TONGUE OEDEMA [None]
